FAERS Safety Report 4627559-3 (Version None)
Quarter: 2005Q2

REPORT INFORMATION
  Report Type: 
  Country: None (occurrence: None)
  Receive Date: 20050405
  Receipt Date: 20050322
  Transmission Date: 20051028
  Serious: Yes (Hospitalization, Other)
  Sender: FDA-Public Use
  Company Number: 2005048113

PATIENT
  Age: 84 Year
  Sex: Female
  Weight: 70.3075 kg

DRUGS (2)
  1. CLINDAMYCIN HYDROCHLORIDE [Suspect]
     Indication: PROPHYLAXIS
     Dosage: ORAL
     Route: 048
  2. DONEPEZIL HCL [Concomitant]

REACTIONS (2)
  - CLOSTRIDIAL INFECTION [None]
  - HAEMORRHAGE [None]
